FAERS Safety Report 7690594-5 (Version None)
Quarter: 2011Q3

REPORT INFORMATION
  Report Type: 
  Country: None (occurrence: None)
  Receive Date: 20110818
  Receipt Date: 20100504
  Transmission Date: 20111222
  Serious: No
  Sender: FDA-Public Use
  Company Number: US-BAYER-201021783NA

PATIENT
  Sex: Female

DRUGS (1)
  1. MIRENA [Suspect]
     Indication: PRODUCT USED FOR UNKNOWN INDICATION
     Dosage: 20 ?G/D, CONT
     Route: 015
     Dates: start: 20090101

REACTIONS (6)
  - DYSPAREUNIA [None]
  - LIBIDO DECREASED [None]
  - FUNGAL INFECTION [None]
  - MOOD SWINGS [None]
  - DIZZINESS [None]
  - HEADACHE [None]
